FAERS Safety Report 15748600 (Version 5)
Quarter: 2019Q1

REPORT INFORMATION
  Report Type: Spontaneous
  Country: US (occurrence: US)
  Receive Date: 20181221
  Receipt Date: 20190312
  Transmission Date: 20190417
  Serious: Yes (Other)
  Sender: FDA-Public Use
  Company Number: US-UNITED THERAPEUTICS-UNT-2018-020928

PATIENT
  Sex: Female
  Weight: 82.99 kg

DRUGS (3)
  1. WARFARIN [Concomitant]
     Active Substance: WARFARIN
     Indication: PRODUCT USED FOR UNKNOWN INDICATION
     Route: 065
  2. ORENITRAM [Suspect]
     Active Substance: TREPROSTINIL
     Indication: PULMONARY ARTERIAL HYPERTENSION
     Dosage: 0.25 MG, TID
     Route: 048
     Dates: start: 20181109
  3. ORENITRAM [Suspect]
     Active Substance: TREPROSTINIL
     Indication: PULMONARY ARTERIAL HYPERTENSION
     Dosage: 0.125 MG, TID
     Route: 048
     Dates: start: 20181109

REACTIONS (13)
  - Haemoptysis [Unknown]
  - Tremor [Unknown]
  - Dyspnoea [Unknown]
  - Headache [Unknown]
  - Fatigue [Unknown]
  - Cough [Unknown]
  - Asthenia [Unknown]
  - Oedema peripheral [Unknown]
  - Pneumonia [Unknown]
  - Ascites [Unknown]
  - Vision blurred [Unknown]
  - Oedema [Unknown]
  - Chest discomfort [Unknown]

NARRATIVE: CASE EVENT DATE: 2018
